FAERS Safety Report 4821396-2 (Version None)
Quarter: 2005Q4

REPORT INFORMATION
  Report Type: 
  Country: None (occurrence: None)
  Receive Date: 20051107
  Receipt Date: 20051026
  Transmission Date: 20060501
  Serious: Yes (Hospitalization, Other)
  Sender: FDA-Public Use
  Company Number: US-JNJFOC-20051000397

PATIENT
  Sex: Male
  Weight: 62.82 kg

DRUGS (2)
  1. REMICADE [Suspect]
     Indication: COLITIS
     Dosage: PATIENT RECEIVED TWO INFUSIONS.
     Route: 042
  2. REMICADE [Suspect]
     Indication: CROHN'S DISEASE
     Route: 042

REACTIONS (3)
  - ABDOMINAL ABSCESS [None]
  - INTESTINAL FISTULA [None]
  - INTESTINAL OBSTRUCTION [None]
